FAERS Safety Report 23673540 (Version 1)
Quarter: 2024Q1

REPORT INFORMATION
  Report Type: Spontaneous
  Country: JP (occurrence: JP)
  Receive Date: 20240326
  Receipt Date: 20240326
  Transmission Date: 20240409
  Serious: Yes (Other)
  Sender: FDA-Public Use
  Company Number: JP-CLINIGEN-JP-CLI-2024-009736

PATIENT

DRUGS (2)
  1. DEXRAZOXANE [Suspect]
     Active Substance: DEXRAZOXANE
     Indication: Infusion site extravasation
     Dosage: 1000 MILLIGRAM/SQ. METER
     Route: 041
  2. DEXRAZOXANE [Suspect]
     Active Substance: DEXRAZOXANE
     Dosage: 500 MICROGRAM/SQ. METER
     Route: 041

REACTIONS (2)
  - Off label use [Unknown]
  - Pleural effusion [Recovered/Resolved]
